FAERS Safety Report 5206483-1 (Version None)
Quarter: 2007Q1

REPORT INFORMATION
  Report Type: 
  Country: None (occurrence: None)
  Receive Date: 20070111
  Receipt Date: 20070104
  Transmission Date: 20070707
  Serious: Yes (Other)
  Sender: FDA-Public Use
  Company Number: US-PFIZER INC-2007002165

PATIENT
  Sex: Male
  Weight: 108 kg

DRUGS (4)
  1. LIPITOR [Suspect]
     Indication: BLOOD CHOLESTEROL INCREASED
  2. GLIPIZIDE [Concomitant]
  3. INSULIN [Concomitant]
  4. AVANDIA [Concomitant]

REACTIONS (1)
  - CEREBROVASCULAR ACCIDENT [None]
